FAERS Safety Report 7095637-8 (Version None)
Quarter: 2010Q4

REPORT INFORMATION
  Report Type: 
  Country: None (occurrence: None)
  Receive Date: 20101111
  Receipt Date: 20101105
  Transmission Date: 20110411
  Serious: Yes (Death, Other)
  Sender: FDA-Public Use
  Company Number: PHHY2010US74932

PATIENT
  Sex: Male

DRUGS (4)
  1. DESFERAL [Suspect]
  2. BLOOD TRANSFUSION, AUXILIARY PRODUCTS [Concomitant]
     Dosage: EVERY TWO TO THREE WEEKS
  3. PREDNISONE [Concomitant]
  4. EPOGEN [Concomitant]
     Dosage: UNK

REACTIONS (9)
  - CARDIAC MURMUR [None]
  - CUSHINGOID [None]
  - DEATH [None]
  - ECCHYMOSIS [None]
  - HAEMOGLOBIN DECREASED [None]
  - LIVER PALPABLE SUBCOSTAL [None]
  - PANCYTOPENIA [None]
  - PETECHIAE [None]
  - PLATELET COUNT DECREASED [None]
